FAERS Safety Report 5173287-8 (Version None)
Quarter: 2006Q4

REPORT INFORMATION
  Report Type: 
  Country: None (occurrence: None)
  Receive Date: 20061206
  Receipt Date: 20061201
  Transmission Date: 20070319
  Serious: Yes (Other)
  Sender: FDA-Public Use
  Company Number: SP01041

PATIENT
  Age: 59 Year
  Sex: Female
  Weight: 90.7194 kg

DRUGS (1)
  1. MOVIPREP [Suspect]
     Indication: COLONOSCOPY
     Dosage: 2000 ML/DAY, ORAL
     Route: 048
     Dates: start: 20061130, end: 20061130

REACTIONS (3)
  - BLOOD PRESSURE INCREASED [None]
  - HAEMORRHAGE [None]
  - VARICOSE VEIN RUPTURED [None]
